FAERS Safety Report 9527738 (Version 1)
Quarter: 2013Q1

REPORT INFORMATION
  Report Type: Spontaneous
  Country: US (occurrence: None)
  Receive Date: 20130314
  Receipt Date: 20130314
  Transmission Date: 20140127
  Serious: No
  Sender: FDA-Public Use
  Company Number: 1302USA005641

PATIENT
  Age: 53 Year
  Sex: Male
  Weight: 111.6 kg

DRUGS (5)
  1. VICTRELIS [Suspect]
     Dosage: 800 MG, TID
  2. RIBAPACK [Suspect]
  3. PEGASYS [Suspect]
  4. AMOXICILLIN (AMOXICILLIN) CHEWABLE TABLET, 125 MG [Concomitant]
  5. ZOLOFT (SERTRALINE HYDROCHLORIDE) TABLET, 100 MG [Concomitant]

REACTIONS (3)
  - Rash [None]
  - Tooth abscess [None]
  - Headache [None]
